FAERS Safety Report 6058024-7 (Version None)
Quarter: 2009Q1

REPORT INFORMATION
  Report Type: 
  Country: None (occurrence: None)
  Receive Date: 20090127
  Receipt Date: 20090116
  Transmission Date: 20090719
  Serious: Yes (Hospitalization)
  Sender: FDA-Public Use
  Company Number: 2005US001157

PATIENT
  Age: 42 Year
  Sex: Male

DRUGS (13)
  1. PROGRAF [Suspect]
     Indication: KIDNEY TRANSPLANT REJECTION
     Dosage: 9 MG, BID, ORAL : 5 MG, BID, ORAL
     Route: 048
     Dates: end: 20050930
  2. PROGRAF [Suspect]
     Indication: KIDNEY TRANSPLANT REJECTION
     Dosage: 9 MG, BID, ORAL : 5 MG, BID, ORAL
     Route: 048
     Dates: start: 20050930
  3. MYCOPHENOLATE MOFETIL [Suspect]
     Indication: KIDNEY TRANSPLANT REJECTION
     Dosage: 1500 MG, BID, ORAL : 500 MG, QID, ORAL : 500 MG, QID, ORAL
     Route: 048
     Dates: end: 20060602
  4. MYCOPHENOLATE MOFETIL [Suspect]
     Indication: KIDNEY TRANSPLANT REJECTION
     Dosage: 1500 MG, BID, ORAL : 500 MG, QID, ORAL : 500 MG, QID, ORAL
     Route: 048
     Dates: start: 20060608
  5. PREDNISONE TAB [Concomitant]
     Indication: KIDNEY TRANSPLANT REJECTION
     Dosage: 5 MG, BID, ORAL
     Route: 048
     Dates: start: 20041121
  6. SODIUM BICARBONATE IN PLASTIC CONTAINER [Concomitant]
  7. NORVASC [Concomitant]
  8. METOPROLOL TARTRATE [Concomitant]
  9. INSULIN (INSULIN) [Concomitant]
  10. ASPIRIN [Concomitant]
  11. STARLIX [Concomitant]
  12. DIOVAN [Concomitant]
  13. ATORVASTATIN CALCIUM [Concomitant]

REACTIONS (4)
  - DIABETIC KETOACIDOSIS [None]
  - DIARRHOEA [None]
  - NOCARDIOSIS [None]
  - PNEUMONIA [None]
